FAERS Safety Report 26054026 (Version 1)
Quarter: 2025Q4

REPORT INFORMATION
  Report Type: Spontaneous
  Country: US (occurrence: US)
  Receive Date: 20251117
  Receipt Date: 20251117
  Transmission Date: 20260118
  Serious: No
  Sender: Day One Biopharmaceuticals
  Company Number: US-Day One Biopharmaceuticals Inc.-2025US001731

PATIENT

DRUGS (1)
  1. OJEMDA [Suspect]
     Active Substance: TOVORAFENIB
     Indication: Astrocytoma, low grade
     Dosage: UNKNOWN
     Route: 065
     Dates: start: 20240615

REACTIONS (1)
  - Corneal infiltrates [Not Recovered/Not Resolved]

NARRATIVE: CASE EVENT DATE: 20240101
